FAERS Safety Report 5609476-5 (Version None)
Quarter: 2008Q1

REPORT INFORMATION
  Report Type: 
  Country: None (occurrence: None)
  Receive Date: 20080131
  Receipt Date: 20080129
  Transmission Date: 20080703
  Serious: Yes (Death)
  Sender: FDA-Public Use
  Company Number: US-ASTRAZENECA-2008UW00451

PATIENT
  Age: 64 Year
  Sex: Female

DRUGS (7)
  1. SEROQUEL [Suspect]
     Route: 048
  2. NEURONTIN [Concomitant]
  3. BUSPAR [Concomitant]
  4. RISPERDAL [Concomitant]
     Indication: SLEEP DISORDER
  5. TRAZODONE HCL [Concomitant]
     Indication: AGITATION
  6. TRILAFON [Concomitant]
  7. THORAZINE [Concomitant]
     Indication: SEDATION

REACTIONS (4)
  - COMPLETED SUICIDE [None]
  - DRUG INEFFECTIVE [None]
  - ILL-DEFINED DISORDER [None]
  - INSOMNIA [None]
